FAERS Safety Report 5907669-0 (Version None)
Quarter: 2008Q4

REPORT INFORMATION
  Report Type: 
  Country: None (occurrence: None)
  Receive Date: 20081003
  Receipt Date: 19931111
  Transmission Date: 20090506
  Serious: Yes (Death)
  Sender: FDA-Public Use
  Company Number: MX-ROCHE-27672

PATIENT
  Age: 38 Year
  Sex: Female

DRUGS (1)
  1. TORADOL [Suspect]
     Indication: PAIN
     Route: 042

REACTIONS (1)
  - DEATH [None]
